FAERS Safety Report 8182224-3 (Version None)
Quarter: 2012Q1

REPORT INFORMATION
  Report Type: 
  Country: None (occurrence: None)
  Receive Date: 20120302
  Receipt Date: 20120223
  Transmission Date: 20120608
  Serious: Yes (Hospitalization)
  Sender: FDA-Public Use
  Company Number: PHHY2012DK015804

PATIENT
  Sex: Male

DRUGS (2)
  1. REMICADE [Suspect]
     Indication: RHEUMATOID ARTHRITIS
     Dosage: 400 MG, WEEKLY DOSE (WEEK 0, 2, 6, +6)
     Dates: start: 20061017, end: 20101130
  2. METHOTREXATE [Suspect]
     Route: 048
     Dates: start: 20061017, end: 20101130

REACTIONS (1)
  - BLADDER CANCER [None]
